FAERS Safety Report 11888204 (Version 1)
Quarter: 2016Q1

REPORT INFORMATION
  Report Type: Spontaneous
  Country: US (occurrence: None)
  Receive Date: 20160104
  Receipt Date: 20160104
  Transmission Date: 20160526
  Serious: Yes (Life-Threatening, Hospitalization, Disabling, Other)
  Sender: FDA-Public Use
  Company Number: None

PATIENT
  Age: 32 Year
  Sex: Male
  Weight: 78.02 kg

DRUGS (3)
  1. PROPECIA [Suspect]
     Active Substance: FINASTERIDE
     Indication: ALOPECIA
     Dosage: 1.25MG DAILY (1/4 OF 5 MG PILL)
     Route: 048
  2. CLOMID [Concomitant]
     Active Substance: CLOMIPHENE CITRATE
  3. PROPECIA [Suspect]
     Active Substance: FINASTERIDE
     Indication: PROPHYLAXIS
     Dosage: 1.25MG DAILY (1/4 OF 5 MG PILL)
     Route: 048

REACTIONS (34)
  - Hyperhidrosis [None]
  - Anxiety [None]
  - Apathy [None]
  - Nipple pain [None]
  - Body fat disorder [None]
  - Tinnitus [None]
  - Arthralgia [None]
  - Panic attack [None]
  - Breast pain [None]
  - Halo vision [None]
  - Aphasia [None]
  - Partner stress [None]
  - Mood swings [None]
  - Muscle atrophy [None]
  - Vitreous floaters [None]
  - Depression [None]
  - Anhedonia [None]
  - Headache [None]
  - Suicidal ideation [None]
  - Memory impairment [None]
  - Quality of life decreased [None]
  - Erectile dysfunction [None]
  - Blood pressure increased [None]
  - Intracranial pressure increased [None]
  - Loss of libido [None]
  - Cognitive disorder [None]
  - Hypothyroidism [None]
  - Blood cholesterol increased [None]
  - Metabolic disorder [None]
  - Visual impairment [None]
  - Penile size reduced [None]
  - Hypogonadism [None]
  - Dry eye [None]
  - Myalgia [None]

NARRATIVE: CASE EVENT DATE: 20151020
